FAERS Safety Report 13436314 (Version 1)
Quarter: 2017Q2

REPORT INFORMATION
  Report Type: Spontaneous
  Country: US (occurrence: US)
  Receive Date: 20170412
  Receipt Date: 20170412
  Transmission Date: 20170830
  Serious: No
  Sender: FDA-Public Use
  Company Number: US-SA-2016SA166481

PATIENT
  Age: 72 Year
  Sex: Female

DRUGS (1)
  1. ALLEGRA [Suspect]
     Active Substance: FEXOFENADINE HYDROCHLORIDE
     Indication: SINUS HEADACHE
     Route: 065
     Dates: start: 20160509

REACTIONS (3)
  - Malaise [Recovered/Resolved]
  - Gastric disorder [Recovered/Resolved]
  - Condition aggravated [Recovered/Resolved]
